FAERS Safety Report 4592490-9 (Version None)
Quarter: 2005Q1

REPORT INFORMATION
  Report Type: 
  Country: None (occurrence: None)
  Receive Date: 20050222
  Receipt Date: 20050207
  Transmission Date: 20050727
  Serious: Yes (Life-Threatening, Hospitalization)
  Sender: FDA-Public Use
  Company Number: 2005026553

PATIENT
  Age: 73 Year
  Sex: Female

DRUGS (10)
  1. DIFLUCAN [Suspect]
     Indication: ILL-DEFINED DISORDER
     Dosage: 150 MG, 1 IN 1 D, ORAL
     Route: 048
  2. WARFARIN SODIUM [Suspect]
     Indication: ILL-DEFINED DISORDER
  3. OXAZEPAM [Concomitant]
  4. DIHYDROCHLORIDE (DIHYDROCHLORIDE) [Concomitant]
  5. MIRTAZAPINE [Concomitant]
  6. BISACODYL (BISACODYL) [Concomitant]
  7. PREDNISONE [Concomitant]
  8. QUININE SULFATE (QUININE SULFATE) [Concomitant]
  9. BECLOMETHASONE DIPROPIONATE [Concomitant]
  10. SALMETEROL (SALMETEROL) [Concomitant]

REACTIONS (4)
  - DRUG INTERACTION [None]
  - DRUG LEVEL CHANGED [None]
  - INTERNATIONAL NORMALISED RATIO INCREASED [None]
  - RESPIRATORY DISORDER [None]
